FAERS Safety Report 5584038-7 (Version None)
Quarter: 2008Q1

REPORT INFORMATION
  Report Type: 
  Country: None (occurrence: None)
  Receive Date: 20080103
  Receipt Date: 20071226
  Transmission Date: 20080703
  Serious: Yes (Other)
  Sender: FDA-Public Use
  Company Number: 2007BI022230

PATIENT
  Age: 51 Year
  Sex: Female
  Weight: 48.5349 kg

DRUGS (9)
  1. TYSABRI [Suspect]
     Indication: MULTIPLE SCLEROSIS
     Dosage: 300 MG;QM;IV
     Route: 042
     Dates: start: 20061106
  2. ACTONEL [Concomitant]
  3. AMITRIPTYLINE HCL [Concomitant]
  4. BACLOFEN [Concomitant]
  5. CITALOPRAM [Concomitant]
  6. KLONOPIN [Concomitant]
  7. NAMENDA [Concomitant]
  8. ROZEREM [Concomitant]
  9. SONATA [Concomitant]

REACTIONS (4)
  - DYSPHAGIA [None]
  - GASTROOESOPHAGEAL REFLUX DISEASE [None]
  - MYCOBACTERIUM AVIUM COMPLEX INFECTION [None]
  - OPPORTUNISTIC INFECTION [None]
